APPROVED DRUG PRODUCT: CHOLINE C-11
Active Ingredient: CHOLINE C-11
Strength: 4-33.1mCi/ML
Dosage Form/Route: INJECTABLE;INTRAVENOUS
Application: A208444 | Product #001
Applicant: UCSF RADIOPHARMACEUTICAL FACILITY
Approved: Nov 20, 2017 | RLD: No | RS: No | Type: DISCN